FAERS Safety Report 10516968 (Version 1)
Quarter: 2014Q4

REPORT INFORMATION
  Report Type: Spontaneous
  Country: US (occurrence: None)
  Receive Date: 20141003
  Receipt Date: 20141003
  Transmission Date: 20150528
  Serious: Yes (Other)
  Sender: FDA-Public Use
  Company Number: 1335051

PATIENT
  Age: 61 Year
  Sex: Male

DRUGS (2)
  1. PEGASYS [Suspect]
     Active Substance: PEGINTERFERON ALFA-2A
     Indication: CHRONIC HEPATITIS C
     Dosage: 180 UG, 1 IN 1 WK, SUBCUTANEOUS
     Route: 058
     Dates: start: 20130725
  2. RIBAPAK ( RIBAVIRIN) [Concomitant]

REACTIONS (3)
  - Anger [None]
  - Depression [None]
  - Insomnia [None]
